FAERS Safety Report 9350427 (Version 1)
Quarter: 2013Q2

REPORT INFORMATION
  Report Type: Spontaneous
  Country: US (occurrence: None)
  Receive Date: 20130613
  Receipt Date: 20130613
  Transmission Date: 20140414
  Serious: Yes (Life-Threatening, Disabling, Other)
  Sender: FDA-Public Use
  Company Number: None

PATIENT
  Sex: 0

DRUGS (3)
  1. CITALOPRAM [Suspect]
     Indication: ANXIETY
     Dosage: 1 TAB BY MOUTH WITH FULL GLASS OF WATER
     Route: 048
     Dates: start: 20130506, end: 20130611
  2. CITALOPRAM [Suspect]
     Indication: POST-TRAUMATIC STRESS DISORDER
     Dosage: 1 TAB BY MOUTH WITH FULL GLASS OF WATER
     Route: 048
     Dates: start: 20130506, end: 20130611
  3. CITALOPRAM [Suspect]
     Indication: OBSESSIVE-COMPULSIVE DISORDER
     Dosage: 1 TAB BY MOUTH WITH FULL GLASS OF WATER
     Route: 048
     Dates: start: 20130506, end: 20130611

REACTIONS (26)
  - Nausea [None]
  - Headache [None]
  - Confusional state [None]
  - Fatigue [None]
  - Chills [None]
  - Hyperhidrosis [None]
  - Somnolence [None]
  - Asthenia [None]
  - Confusional state [None]
  - Judgement impaired [None]
  - Impaired driving ability [None]
  - Visual acuity reduced [None]
  - Loss of consciousness [None]
  - Tremor [None]
  - Balance disorder [None]
  - Retching [None]
  - Memory impairment [None]
  - Indifference [None]
  - Dizziness [None]
  - Weight decreased [None]
  - Decreased appetite [None]
  - Bruxism [None]
  - Muscle tightness [None]
  - Vision blurred [None]
  - Road traffic accident [None]
  - Loss of employment [None]
